FAERS Safety Report 18058180 (Version 1)
Quarter: 2020Q3

REPORT INFORMATION
  Report Type: Spontaneous
  Country: US (occurrence: US)
  Receive Date: 20200723
  Receipt Date: 20200723
  Transmission Date: 20201103
  Serious: No
  Sender: FDA-Public Use
  Company Number: NVSC2020US206905

PATIENT
  Age: 57 Year
  Sex: Female

DRUGS (2)
  1. AIMOVIG [Suspect]
     Active Substance: ERENUMAB-AOOE
     Indication: MIGRAINE
     Dosage: 70 MILLIGRAM, QMO
     Route: 065
     Dates: start: 201908
  2. PREDNISONE. [Suspect]
     Active Substance: PREDNISONE
     Indication: INFLUENZA LIKE ILLNESS
     Route: 065

REACTIONS (3)
  - Influenza like illness [Unknown]
  - Weight fluctuation [Unknown]
  - Product storage error [Unknown]

NARRATIVE: CASE EVENT DATE: 2019
